FAERS Safety Report 5803943-7 (Version None)
Quarter: 2008Q3

REPORT INFORMATION
  Report Type: 
  Country: None (occurrence: None)
  Receive Date: 20080708
  Receipt Date: 20080626
  Transmission Date: 20090109
  Serious: Yes (Hospitalization)
  Sender: FDA-Public Use
  Company Number: IT-PFIZER INC-2008054657

PATIENT
  Sex: Male

DRUGS (3)
  1. RELPAX [Suspect]
     Indication: HEADACHE
     Dates: start: 20080609, end: 20080616
  2. DICLOREUM [Suspect]
     Indication: ARTHRALGIA
     Dosage: TEXT:1 UNIT DOSE
     Route: 062
     Dates: start: 20080616, end: 20080617
  3. AMITRIPTYLINE HYDROCHLORIDE [Concomitant]
     Route: 048

REACTIONS (2)
  - ANGIOEDEMA [None]
  - URTICARIA [None]
